FAERS Safety Report 7152313-0 (Version None)
Quarter: 2010Q4

REPORT INFORMATION
  Report Type: 
  Country: None (occurrence: None)
  Receive Date: 20101123
  Receipt Date: 20101111
  Transmission Date: 20110411
  Serious: Yes (Hospitalization)
  Sender: FDA-Public Use
  Company Number: 011772

PATIENT
  Age: 75 Year
  Sex: Male

DRUGS (1)
  1. PLETAL [Suspect]
     Indication: FEMORAL ARTERIAL STENOSIS
     Dosage: ORAL
     Route: 048
     Dates: start: 20060901

REACTIONS (3)
  - BLOOD CREATININE INCREASED [None]
  - FAT EMBOLISM [None]
  - SKIN ULCER [None]
